FAERS Safety Report 7589844-5 (Version None)
Quarter: 2011Q3

REPORT INFORMATION
  Report Type: 
  Country: None (occurrence: None)
  Receive Date: 20110705
  Receipt Date: 20110621
  Transmission Date: 20111222
  Serious: Yes (Death, Other)
  Sender: FDA-Public Use
  Company Number: CA-BAYER-2011-046020

PATIENT
  Age: 31 Year
  Sex: Male

DRUGS (3)
  1. GADAVIST [Suspect]
     Indication: ANGIOGRAM
     Dosage: UNK
  2. OMNISCAN [Suspect]
     Indication: ANGIOGRAM
     Dosage: UNK
     Dates: start: 20050105, end: 20050105
  3. OMNISCAN [Suspect]
     Dosage: UNK
     Dates: start: 20050829, end: 20050829

REACTIONS (6)
  - CARDIAC ARREST [None]
  - POLYARTHRITIS [None]
  - SCLERODERMA [None]
  - HYPOXIC-ISCHAEMIC ENCEPHALOPATHY [None]
  - NEPHROGENIC SYSTEMIC FIBROSIS [None]
  - OEDEMA PERIPHERAL [None]
